FAERS Safety Report 24428272 (Version 3)
Quarter: 2024Q4

REPORT INFORMATION
  Report Type: Spontaneous
  Country: US (occurrence: US)
  Receive Date: 20241011
  Receipt Date: 20241029
  Transmission Date: 20250115
  Serious: No
  Sender: LEO PHARM
  Company Number: US-LEO Pharma-374099

PATIENT
  Age: 60 Year
  Sex: Male

DRUGS (3)
  1. ADBRY [Suspect]
     Active Substance: TRALOKINUMAB-LDRM
     Indication: Dermatitis atopic
     Route: 058
     Dates: start: 202404
  2. ADBRY [Suspect]
     Active Substance: TRALOKINUMAB-LDRM
     Indication: Dermatitis atopic
     Route: 058
     Dates: start: 20240314
  3. ZORYVE [Concomitant]
     Active Substance: ROFLUMILAST
     Indication: Dermatitis atopic
     Dosage: ZORYVE CREAM 0.15%

REACTIONS (2)
  - Drug ineffective [Unknown]
  - Injection site erythema [Unknown]
